FAERS Safety Report 5062623-9 (Version None)
Quarter: 2006Q3

REPORT INFORMATION
  Report Type: 
  Country: None (occurrence: None)
  Receive Date: 20060724
  Receipt Date: 20060719
  Transmission Date: 20061208
  Serious: Yes (Other)
  Sender: FDA-Public Use
  Company Number: NO-2006-019395

PATIENT
  Age: 26 Year
  Sex: Female

DRUGS (1)
  1. YASMIN [Suspect]
     Indication: ORAL CONTRACEPTION
     Dosage: 21D/28D, ORAL
     Route: 048
     Dates: start: 20060620, end: 20060624

REACTIONS (2)
  - ANAPHYLACTIC REACTION [None]
  - VASCULITIS [None]
